FAERS Safety Report 8328157-0 (Version None)
Quarter: 2012Q2

REPORT INFORMATION
  Report Type: 
  Country: None (occurrence: None)
  Receive Date: 20120502
  Receipt Date: 20120430
  Transmission Date: 20120825
  Serious: Yes (Death, Hospitalization)
  Sender: FDA-Public Use
  Company Number: PHEH2012US009190

PATIENT
  Sex: Female

DRUGS (1)
  1. EXJADE [Suspect]

REACTIONS (2)
  - WOUND [None]
  - DEATH [None]
